FAERS Safety Report 17856400 (Version 5)
Quarter: 2020Q3

REPORT INFORMATION
  Report Type: Report from Study
  Country: ES (occurrence: ES)
  Receive Date: 20200603
  Receipt Date: 20200925
  Transmission Date: 20201103
  Serious: Yes (Death)
  Sender: FDA-Public Use
  Company Number: ES-ROCHE-2610151

PATIENT
  Age: 77 Year
  Sex: Male
  Weight: 56 kg

DRUGS (16)
  1. NAB?PACLITAXEL [Suspect]
     Active Substance: PACLITAXEL
     Indication: NON-SMALL CELL LUNG CANCER
     Dosage: DATE OF MOST RECENT DOSE OF NAB?PACLITAXEL (100 MG) PRIOR TO AE ONSET:28/FEB/2020
     Route: 042
     Dates: start: 20191218
  2. OMEPRAZOL [Concomitant]
     Active Substance: OMEPRAZOLE
     Dates: start: 20191111
  3. PREDNICARBATE. [Concomitant]
     Active Substance: PREDNICARBATE
     Indication: SKIN TOXICITY
     Route: 061
     Dates: start: 20200117
  4. DUTASTERIDA [Concomitant]
     Active Substance: DUTASTERIDE
     Indication: BENIGN PROSTATIC HYPERPLASIA
     Dates: start: 20140828
  5. HEPARIN [Concomitant]
     Active Substance: HEPARIN SODIUM
     Dates: start: 20200103
  6. CARBOPLATIN. [Suspect]
     Active Substance: CARBOPLATIN
     Indication: NON-SMALL CELL LUNG CANCER
     Dosage: INITIAL TARGET AUC OF 6 MG/ML/MIN ?DATE OF MOST RECENT DOSE OF CARBOPLATIN (410 MG) PRIOR TO AE ONSE
     Route: 042
     Dates: start: 20191218
  7. BRINZOLAMIDA [Concomitant]
     Indication: GLAUCOMA
     Dates: start: 20090617
  8. ATEZOLIZUMAB. [Suspect]
     Active Substance: ATEZOLIZUMAB
     Indication: NON-SMALL CELL LUNG CANCER
     Dosage: DATE OF MOST RECENT DOSE (1200 MG) OF BLINDED ATEZOLIZUMAB PRIOR TO AE ONSET: 28/FEB/2020
     Route: 042
     Dates: start: 20191218
  9. NITROGLYCERINE [Concomitant]
     Active Substance: NITROGLYCERIN
     Dates: start: 20160311
  10. TRAMADOL. [Concomitant]
     Active Substance: TRAMADOL
     Indication: PAIN
     Dates: start: 20150821
  11. TAMSULOSINA [Concomitant]
     Active Substance: TAMSULOSIN HYDROCHLORIDE
     Indication: BENIGN PROSTATIC HYPERPLASIA
     Dates: start: 20140828
  12. HIDROCLOROTIAZIDA [Concomitant]
     Active Substance: HYDROCHLOROTHIAZIDE
     Dates: start: 20181120
  13. PARACETAMOL [Concomitant]
     Active Substance: ACETAMINOPHEN
     Indication: PAIN
     Dates: start: 20150821
  14. MIRABEGRON [Concomitant]
     Active Substance: MIRABEGRON
     Indication: BENIGN PROSTATIC HYPERPLASIA
     Dates: start: 20150325
  15. SIMVASTATINA [Concomitant]
     Active Substance: SIMVASTATIN
     Indication: DYSLIPIDAEMIA
     Dates: start: 20190919
  16. TOCOPHEROL [Concomitant]
     Active Substance: TOCOPHEROL
     Indication: GLAUCOMA

REACTIONS (2)
  - Pneumonitis [Recovered/Resolved]
  - Dyspnoea [Fatal]

NARRATIVE: CASE EVENT DATE: 20200319
